FAERS Safety Report 5307011-2 (Version None)
Quarter: 2007Q2

REPORT INFORMATION
  Report Type: 
  Country: None (occurrence: None)
  Receive Date: 20070419
  Receipt Date: 20070410
  Transmission Date: 20071010
  Serious: Yes (Hospitalization)
  Sender: FDA-Public Use
  Company Number: 2006PV024648

PATIENT
  Age: 53 Year
  Sex: Female
  Weight: 80.2867 kg

DRUGS (10)
  1. BYETTA [Suspect]
     Indication: DIABETES MELLITUS NON-INSULIN-DEPENDENT
     Dosage: SEE IMAGE
     Route: 058
     Dates: start: 20051212, end: 20060112
  2. BYETTA [Suspect]
     Indication: DIABETES MELLITUS NON-INSULIN-DEPENDENT
     Dosage: SEE IMAGE
     Route: 058
     Dates: start: 20060112
  3. VYTORIN [Concomitant]
  4. AMARYL [Concomitant]
  5. XANAX [Concomitant]
  6. PROZAC [Concomitant]
  7. PREVACID [Concomitant]
  8. ASPIRIN [Concomitant]
  9. NORVASC [Concomitant]
  10. MOTRIN [Concomitant]

REACTIONS (5)
  - ALOPECIA [None]
  - INTERVERTEBRAL DISC PROTRUSION [None]
  - NAUSEA [None]
  - PAIN IN EXTREMITY [None]
  - WEIGHT DECREASED [None]
